FAERS Safety Report 12497377 (Version 1)
Quarter: 2016Q2

REPORT INFORMATION
  Report Type: Spontaneous
  Country: US (occurrence: US)
  Receive Date: 20160624
  Receipt Date: 20160624
  Transmission Date: 20160815
  Serious: Yes (Hospitalization, Other)
  Sender: FDA-Public Use
  Company Number: US-MYLANLABS-2016M1026151

PATIENT

DRUGS (1)
  1. IBUPROFEN. [Suspect]
     Active Substance: IBUPROFEN
     Indication: ARTHRITIS
     Dosage: LONG TERM USE
     Route: 065

REACTIONS (3)
  - Pneumothorax [Unknown]
  - Pleural effusion [Unknown]
  - Oesophageal rupture [Not Recovered/Not Resolved]
